FAERS Safety Report 9842711 (Version 3)
Quarter: 2014Q1

REPORT INFORMATION
  Report Type: Report from Study
  Country: JP (occurrence: JP)
  Receive Date: 20140124
  Receipt Date: 20140324
  Transmission Date: 20141002
  Serious: No
  Sender: FDA-Public Use
  Company Number: JP-PFIZER INC-2014018798

PATIENT
  Age: 76 Year
  Sex: Male
  Weight: 58.2 kg

DRUGS (10)
  1. XALKORI [Suspect]
     Indication: NON-SMALL CELL LUNG CANCER
     Dosage: 250 MG, 2X/DAY
     Route: 048
     Dates: start: 20130329, end: 20130426
  2. XALKORI [Suspect]
     Dosage: 200 MG, 2X/DAY
     Route: 048
     Dates: start: 20130510, end: 20130523
  3. XALKORI [Suspect]
     Dosage: 200 MG, 1X/DAY
     Route: 048
     Dates: start: 20130603, end: 20130610
  4. XALKORI [Suspect]
     Dosage: 250 MG, 1X/DAY
     Route: 048
     Dates: start: 20130611, end: 20130619
  5. LIPITOR [Concomitant]
     Dosage: 5 MG, 1X/DAY
     Route: 048
     Dates: end: 20130524
  6. TENORMIN [Concomitant]
     Dosage: 50 MG, 1X/DAY
     Route: 048
     Dates: end: 20130517
  7. DIGOXIN [Concomitant]
     Dosage: 0.125 MG, 1X/DAY
     Route: 048
  8. WARFARIN [Concomitant]
     Dosage: 3 MG, 1X/DAY
     Route: 048
  9. LOXONIN [Concomitant]
     Dosage: 60 MG, 3X/DAY
     Route: 048
     Dates: end: 20130512
  10. MUCOSTA [Concomitant]
     Dosage: 100 MG, 3X/DAY
     Route: 048
     Dates: end: 20130531

REACTIONS (6)
  - Prothrombin time prolonged [Recovered/Resolved]
  - Cardioactive drug level increased [Recovering/Resolving]
  - Constipation [Not Recovered/Not Resolved]
  - Subileus [Recovering/Resolving]
  - Decreased appetite [Not Recovered/Not Resolved]
  - Hypogeusia [Recovering/Resolving]
